FAERS Safety Report 6569008-4 (Version None)
Quarter: 2010Q1

REPORT INFORMATION
  Report Type: 
  Country: None (occurrence: None)
  Receive Date: 20100203
  Receipt Date: 20100126
  Transmission Date: 20100710
  Serious: Yes (Hospitalization)
  Sender: FDA-Public Use
  Company Number: GR-ABBOTT-09P-066-0584537-01

PATIENT
  Sex: Female
  Weight: 63 kg

DRUGS (3)
  1. HUMIRA [Suspect]
     Indication: RHEUMATOID ARTHRITIS
     Route: 058
     Dates: start: 20050204, end: 20090219
  2. CAPOTEN [Concomitant]
     Indication: HYPERTENSION
     Dates: start: 20080101, end: 20090621
  3. PLAVIX [Concomitant]
     Indication: SURGERY
     Dates: start: 20080521

REACTIONS (1)
  - GLOMUS JUGULARE TUMOUR [None]
